FAERS Safety Report 9967311 (Version 2)
Quarter: 2014Q1

REPORT INFORMATION
  Report Type: Report from Study
  Country: US (occurrence: US)
  Receive Date: 20140305
  Receipt Date: 20140305
  Transmission Date: 20141002
  Serious: No
  Sender: FDA-Public Use
  Company Number: US-ABBVIE-13P-163-1090240-00

PATIENT
  Age: 48 Year
  Sex: Male
  Weight: 59.47 kg

DRUGS (2)
  1. HUMIRA [Suspect]
     Indication: CROHN^S DISEASE
     Route: 058
     Dates: start: 201207, end: 2013
  2. ATRIPLA [Concomitant]
     Indication: HIV INFECTION

REACTIONS (2)
  - Crohn^s disease [Not Recovered/Not Resolved]
  - Drug effect decreased [Unknown]
